FAERS Safety Report 7100360-7 (Version None)
Quarter: 2010Q4

REPORT INFORMATION
  Report Type: 
  Country: None (occurrence: None)
  Receive Date: 20101112
  Receipt Date: 20101020
  Transmission Date: 20110411
  Serious: Yes (Death)
  Sender: FDA-Public Use
  Company Number: GB-AMGEN-GBRCT2010000768

PATIENT

DRUGS (18)
  1. ETANERCEPT [Suspect]
     Indication: RHEUMATOID ARTHRITIS
     Dosage: 25 MG, 2 TIMES/WK
     Route: 058
     Dates: start: 20080408, end: 20080509
  2. ADCAL [Concomitant]
     Dosage: UNKNOWN
  3. ALENDRONIC ACID [Concomitant]
     Dosage: UNKNOWN
  4. ASPIRIN [Concomitant]
     Dosage: UNKNOWN
  5. ATORVASTATIN [Concomitant]
     Dosage: UNKNOWN
  6. CO-CODAMOL [Concomitant]
     Dosage: UNKNOWN
  7. ETORICOXIB [Concomitant]
     Dosage: UNKNOWN
  8. FOLIC ACID [Concomitant]
     Dosage: UNKNOWN
  9. FRUSEMIDE [Concomitant]
     Dosage: UNKNOWN
  10. LORAZEPAM [Concomitant]
     Dosage: UNKNOWN
  11. OMEPRAZOLE [Concomitant]
     Dosage: UNKNOWN
  12. SERETIDE [Concomitant]
     Dosage: UNKNOWN
  13. DILTIAZEM HCL [Concomitant]
     Dosage: UNKNOWN
  14. LEVOTHYROXINE [Concomitant]
     Dosage: UNKNOWN
  15. SALAMOL EASI-BREATHE [Concomitant]
     Dosage: UNKNOWN
  16. DULOXETINE [Concomitant]
     Dosage: UNKNOWN
  17. DONEPEZIL HCL [Concomitant]
     Dosage: UNKNOWN
  18. MINOCYCLINE HCL [Concomitant]
     Dosage: UNKNOWN

REACTIONS (3)
  - BRONCHOPNEUMONIA [None]
  - LUNG NEOPLASM MALIGNANT [None]
  - VASCULAR DEMENTIA [None]
